FAERS Safety Report 18538997 (Version 1)
Quarter: 2020Q4

REPORT INFORMATION
  Report Type: Spontaneous
  Country: ES (occurrence: ES)
  Receive Date: 20201124
  Receipt Date: 20201124
  Transmission Date: 20210114
  Serious: Yes (Hospitalization)
  Sender: FDA-Public Use
  Company Number: NVSC2020ES309115

PATIENT
  Age: 68 Year
  Sex: Male
  Weight: 69 kg

DRUGS (21)
  1. DEXAMETHASONE. [Suspect]
     Active Substance: DEXAMETHASONE
     Indication: PLASMA CELL MYELOMA
     Dosage: 40 MG
     Route: 048
     Dates: start: 20190726, end: 20191029
  2. FENTANILO [Concomitant]
     Active Substance: FENTANYL
     Dosage: 50 UG, QW
     Route: 061
     Dates: start: 20190627
  3. OMEPRAZOL [Concomitant]
     Active Substance: OMEPRAZOLE
     Dosage: UNK
     Route: 065
  4. COSOPT [Concomitant]
     Active Substance: DORZOLAMIDE HYDROCHLORIDE\TIMOLOL MALEATE
     Indication: GLAUCOMA
     Dosage: 4 DRP, QD
     Route: 047
     Dates: start: 20130313
  5. OMEPRAZOL [Concomitant]
     Active Substance: OMEPRAZOLE
     Indication: GASTROINTESTINAL DISORDER PROPHYLAXIS
     Dosage: 80 MG, QD
     Route: 048
     Dates: start: 20130422
  6. METAMIZOLE [Concomitant]
     Active Substance: METAMIZOLE
     Indication: BACK PAIN
     Dosage: 575 MG
     Route: 048
     Dates: start: 20190627
  7. HYDROCHLOROTHIAZIDE. [Concomitant]
     Active Substance: HYDROCHLOROTHIAZIDE
     Indication: HYPERTENSION
     Dosage: 12.5 MILLIGRAM
     Route: 048
     Dates: start: 20140306
  8. LORAZEPAM. [Concomitant]
     Active Substance: LORAZEPAM
     Indication: PROPHYLAXIS
     Dosage: 1 MG, QD
     Route: 048
     Dates: start: 20190627
  9. FENTANILO [Concomitant]
     Active Substance: FENTANYL
     Indication: BACK PAIN
     Route: 065
  10. HIBOR [Concomitant]
     Indication: THROMBOSIS PROPHYLAXIS
     Dosage: 3500 IU/G
     Route: 058
     Dates: start: 20190627
  11. AMLODIPINO [Concomitant]
     Active Substance: AMLODIPINE BESYLATE
     Indication: HYPERTENSION
     Dosage: 5 MG, QD
     Route: 048
     Dates: start: 20190722
  12. LORAZEPAM. [Concomitant]
     Active Substance: LORAZEPAM
     Indication: BACK PAIN
     Route: 065
  13. BORTEZOMIB. [Concomitant]
     Active Substance: BORTEZOMIB
     Indication: PLASMA CELL MYELOMA
     Dosage: 2.34 MILLIGRAM
     Route: 058
     Dates: start: 20190726, end: 20191028
  14. LENALIDOMIDE [Suspect]
     Active Substance: LENALIDOMIDE
     Indication: PLASMA CELL MYELOMA
     Dosage: 25 MILLIGRAM
     Route: 048
     Dates: start: 20190726, end: 20191104
  15. PARACETAMOL [Concomitant]
     Active Substance: ACETAMINOPHEN
     Indication: BACK PAIN
     Dosage: 1 G
     Route: 048
     Dates: start: 20180320
  16. COSOPT [Concomitant]
     Active Substance: DORZOLAMIDE HYDROCHLORIDE\TIMOLOL MALEATE
     Dosage: UNK
     Route: 065
  17. LACTULOSA [Concomitant]
     Active Substance: LACTULOSE
     Indication: CONSTIPATION
     Dosage: 30 MG, QD
     Route: 048
     Dates: start: 20190627
  18. AMLODIPINO [Concomitant]
     Active Substance: AMLODIPINE BESYLATE
     Dosage: UNK
     Route: 065
  19. TAFLUPROST [Concomitant]
     Active Substance: TAFLUPROST
     Indication: BACK PAIN
     Route: 065
  20. TAFLUPROST [Concomitant]
     Active Substance: TAFLUPROST
     Indication: GLAUCOMA
     Dosage: 1 DRP
     Route: 047
     Dates: start: 20130321
  21. HYDROCORTISONE. [Concomitant]
     Active Substance: HYDROCORTISONE
     Indication: RENAL FAILURE
     Route: 065

REACTIONS (1)
  - Hypothyroidism [Recovering/Resolving]

NARRATIVE: CASE EVENT DATE: 20191104
